FAERS Safety Report 12580223 (Version 3)
Quarter: 2016Q3

REPORT INFORMATION
  Report Type: Report from Study
  Country: US (occurrence: US)
  Receive Date: 20160721
  Receipt Date: 20160920
  Transmission Date: 20161109
  Serious: Yes (Other)
  Sender: FDA-Public Use
  Company Number: US-BAYER-2016-137735

PATIENT
  Age: 74 Year
  Sex: Female
  Weight: 58 kg

DRUGS (11)
  1. TRETINOIN. [Concomitant]
     Active Substance: TRETINOIN
     Dosage: 45 MG-00.5%
  2. ROSUVASTATIN. [Concomitant]
     Active Substance: ROSUVASTATIN
     Dosage: 10 MG
  3. VITAMIN D3 [Concomitant]
     Active Substance: CHOLECALCIFEROL
     Dosage: 1000 UNITS
  4. CLOPIDOGREL BISULFATE. [Concomitant]
     Active Substance: CLOPIDOGREL BISULFATE
     Dosage: 75 MG
  5. VITAMIN E [Concomitant]
     Active Substance: .ALPHA.-TOCOPHEROL
  6. TOBRAMYCIN. [Concomitant]
     Active Substance: TOBRAMYCIN
  7. ECOTRIN [Concomitant]
     Active Substance: ASPIRIN
     Dosage: 325 MG
  8. LORAZEPAM. [Concomitant]
     Active Substance: LORAZEPAM
  9. STIVARGA [Suspect]
     Active Substance: REGORAFENIB
     Indication: GASTROINTESTINAL STROMAL TUMOUR
     Dosage: 160 MG, QD (DAYS 1-21 OF 28 DAY CYCLE)
     Route: 048
     Dates: start: 20160602
  10. CALCIUM CARBONATE. [Concomitant]
     Active Substance: CALCIUM CARBONATE
     Dosage: 500 MG
  11. VITAMIN A AND D [Concomitant]
     Active Substance: LANOLIN\PETROLATUM

REACTIONS (16)
  - Diarrhoea [Unknown]
  - Myalgia [Unknown]
  - Myalgia [Unknown]
  - Rash [Not Recovered/Not Resolved]
  - Otorrhoea [Unknown]
  - Cognitive disorder [Unknown]
  - Palmar-plantar erythrodysaesthesia syndrome [Unknown]
  - Nausea [Unknown]
  - Pain [Unknown]
  - Diarrhoea [Unknown]
  - Confusional state [Unknown]
  - Abdominal pain upper [Unknown]
  - Asthenia [Unknown]
  - Weight decreased [Unknown]
  - Headache [Unknown]
  - Dysphonia [Unknown]

NARRATIVE: CASE EVENT DATE: 2016
